FAERS Safety Report 11520121 (Version 1)
Quarter: 2015Q3

REPORT INFORMATION
  Report Type: Spontaneous
  Country: None (occurrence: None)
  Receive Date: 20150917
  Receipt Date: 20150917
  Transmission Date: 20151125
  Serious: Yes (Other)
  Sender: FDA-Public Use
  Company Number: None

PATIENT

DRUGS (1)
  1. CIPROFLOXACIN. [Suspect]
     Active Substance: CIPROFLOXACIN

REACTIONS (7)
  - Gait disturbance [None]
  - Exostosis [None]
  - Palpitations [None]
  - Chondropathy [None]
  - Ventricular extrasystoles [None]
  - Meniscus injury [None]
  - Rotator cuff syndrome [None]
